FAERS Safety Report 4883145-1 (Version None)
Quarter: 2006Q1

REPORT INFORMATION
  Report Type: 
  Country: None (occurrence: None)
  Receive Date: 20060117
  Receipt Date: 20060117
  Transmission Date: 20060701
  Serious: Yes (Disabling)
  Sender: FDA-Public Use
  Company Number: None

PATIENT
  Age: 41 Year
  Sex: Female

DRUGS (1)
  1. ORTHOCLONE OKT3 [Suspect]

REACTIONS (7)
  - CHILLS [None]
  - HEADACHE [None]
  - INTRACRANIAL PRESSURE INCREASED [None]
  - MENINGITIS ASEPTIC [None]
  - PAIN IN EXTREMITY [None]
  - PHOTOPHOBIA [None]
  - PYREXIA [None]
